FAERS Safety Report 5174443-5 (Version None)
Quarter: 2006Q4

REPORT INFORMATION
  Report Type: 
  Country: None (occurrence: None)
  Receive Date: 20061206
  Receipt Date: 20061123
  Transmission Date: 20070319
  Serious: Yes (Other)
  Sender: FDA-Public Use
  Company Number: 2006137430

PATIENT
  Age: 79 Year
  Sex: Female
  Weight: 78 kg

DRUGS (1)
  1. SUTENT [Suspect]
     Indication: RENAL CELL CARCINOMA STAGE UNSPECIFIED
     Dosage: 50 MG, ORAL
     Route: 048
     Dates: start: 20061027, end: 20061115

REACTIONS (2)
  - GENERAL PHYSICAL HEALTH DETERIORATION [None]
  - TONGUE OEDEMA [None]
